FAERS Safety Report 22388595 (Version 2)
Quarter: 2023Q2

REPORT INFORMATION
  Report Type: Spontaneous
  Country: EG (occurrence: EG)
  Receive Date: 20230531
  Receipt Date: 20230612
  Transmission Date: 20230722
  Serious: Yes (Hospitalization, Other)
  Sender: FDA-Public Use
  Company Number: EG-NOVOPROD-1069009

PATIENT
  Age: 7 Year
  Sex: Male
  Weight: 27 kg

DRUGS (3)
  1. NOVORAPID [Suspect]
     Active Substance: INSULIN ASPART
     Indication: Product used for unknown indication
     Dosage: 12 IU, QD (3 IU + 6IU +3 IU PER EACH MEAL)
  2. LANTUS [Suspect]
     Active Substance: INSULIN GLARGINE
     Indication: Product used for unknown indication
     Dosage: 10 IU
  3. LANTUS [Suspect]
     Active Substance: INSULIN GLARGINE
     Dosage: ADDITIONAL DOSES WITH HIGH CALORIES BETWEEN MEALS

REACTIONS (5)
  - Fall [Not Recovered/Not Resolved]
  - Joint injury [Not Recovered/Not Resolved]
  - Acidosis [Recovered/Resolved]
  - Injection site pain [Not Recovered/Not Resolved]
  - Blood glucose decreased [Unknown]
